FAERS Safety Report 7206127-3 (Version None)
Quarter: 2010Q4

REPORT INFORMATION
  Report Type: 
  Country: None (occurrence: None)
  Receive Date: 20101217
  Receipt Date: 20101201
  Transmission Date: 20110411
  Serious: Yes (Other)
  Sender: FDA-Public Use
  Company Number: 020810

PATIENT
  Sex: Male
  Weight: 76.2 kg

DRUGS (3)
  1. CIMZIA [Suspect]
     Indication: OFF LABEL USE
     Dosage: (TWO SHOTS; LAST INJECTION 25/NOV/2010 SUBCUTANEOUS)
     Route: 058
     Dates: start: 20101001
  2. CARAFATE [Concomitant]
  3. PREDNISONE [Concomitant]

REACTIONS (10)
  - DECREASED APPETITE [None]
  - DIARRHOEA HAEMORRHAGIC [None]
  - INJECTION SITE EXTRAVASATION [None]
  - INJECTION SITE PAIN [None]
  - LYMPHADENOPATHY [None]
  - MALAISE [None]
  - NASOPHARYNGITIS [None]
  - OFF LABEL USE [None]
  - OROPHARYNGEAL PAIN [None]
  - WEIGHT DECREASED [None]
